FAERS Safety Report 18917260 (Version 1)
Quarter: 2021Q1

REPORT INFORMATION
  Report Type: Report from Study
  Country: US (occurrence: US)
  Receive Date: 20210219
  Receipt Date: 20210219
  Transmission Date: 20210420
  Serious: No
  Sender: FDA-Public Use
  Company Number: US-BIOVITRUM-2021US0080

PATIENT
  Sex: Female

DRUGS (2)
  1. KINERET [Suspect]
     Active Substance: ANAKINRA
     Indication: PRODUCT USED FOR UNKNOWN INDICATION
     Route: 058
  2. KINERET [Suspect]
     Active Substance: ANAKINRA
     Route: 058

REACTIONS (3)
  - Rash macular [Unknown]
  - Sinusitis [Unknown]
  - Dizziness [Unknown]
